FAERS Safety Report 9554129 (Version 2)
Quarter: 2013Q3

REPORT INFORMATION
  Report Type: Report from Study
  Country: US (occurrence: US)
  Receive Date: 20130925
  Receipt Date: 20130925
  Transmission Date: 20140515
  Serious: Yes (Other)
  Sender: FDA-Public Use
  Company Number: US-BRISTOL-MYERS SQUIBB COMPANY-15150014

PATIENT
  Age: 79 Year
  Sex: Male

DRUGS (4)
  1. IPILIMUMAB [Suspect]
     Indication: MALIGNANT MELANOMA
     Dosage: 261 MG,18MAY10
     Route: 042
     Dates: start: 20100407, end: 20100518
  2. BENAZEPRIL HCL [Concomitant]
     Dates: start: 2000, end: 20100813
  3. ATENOLOL [Concomitant]
     Dates: start: 2001, end: 20100813
  4. HYDROCHLOROTHIAZIDE [Concomitant]
     Dates: start: 2003, end: 20100813

REACTIONS (1)
  - Diarrhoea [Recovered/Resolved]
